FAERS Safety Report 8951365 (Version 2)
Quarter: 2012Q4

REPORT INFORMATION
  Report Type: 
  Country: US (occurrence: US)
  Receive Date: 20121207
  Receipt Date: 20121207
  Transmission Date: 20130627
  Serious: Yes (Other)
  Sender: FDA-Public Use
  Company Number: US-JNJFOC-20121115093

PATIENT

DRUGS (7)
  1. DOXORUBICIN [Suspect]
     Indication: EWING^S SARCOMA
     Dosage: on day 1 and 2 of each cycle
     Route: 042
  2. VINCRISTINE [Suspect]
     Indication: EWING^S SARCOMA
     Dosage: maximum of 2 mg, day 1 of each cycle
     Route: 065
  3. CYCLOPHOSPHAMIDE [Suspect]
     Indication: EWING^S SARCOMA
     Dosage: on day 1
     Route: 065
  4. IFOSFAMIDE [Suspect]
     Indication: EWING^S SARCOMA
     Dosage: days 1-5
     Route: 065
  5. ETOPOSIDE [Suspect]
     Indication: EWING^S SARCOMA
     Dosage: on days 1-5
     Route: 065
  6. RADIATION THERAPY [Suspect]
     Indication: EWING^S SARCOMA
     Route: 065
  7. FILGRASTIM [Concomitant]
     Dosage: maximum - 300 mg
     Route: 065

REACTIONS (2)
  - Osteosarcoma [Unknown]
  - Off label use [Unknown]
